FAERS Safety Report 5758711-1 (Version None)
Quarter: 2008Q2

REPORT INFORMATION
  Report Type: 
  Country: None (occurrence: None)
  Receive Date: 20080603
  Receipt Date: 20080603
  Transmission Date: 20081010
  Serious: Yes (Life-Threatening)
  Sender: FDA-Public Use
  Company Number: None

PATIENT
  Sex: Female
  Weight: 94.8018 kg

DRUGS (2)
  1. CHANTIX [Suspect]
     Indication: SMOKING CESSATION THERAPY
     Dosage: ONE MILLIGRAM TWO TIMES DAY PO
     Route: 048
     Dates: start: 20080402, end: 20080528
  2. A ^PM^ MEDICINE OTC [Suspect]
     Indication: SLEEP DISORDER
     Dosage: TWO TABS?? HS FOR SLEEP PO PRN
     Route: 048

REACTIONS (9)
  - AMNESIA [None]
  - FEELING HOT [None]
  - HEADACHE [None]
  - INSOMNIA [None]
  - LOSS OF CONSCIOUSNESS [None]
  - NAUSEA [None]
  - PULSE ABSENT [None]
  - SENSATION OF HEAVINESS [None]
  - TACHYCARDIA [None]
